FAERS Safety Report 14789657 (Version 2)
Quarter: 2018Q4

REPORT INFORMATION
  Report Type: Spontaneous
  Country: FR (occurrence: FR)
  Receive Date: 20180423
  Receipt Date: 20181025
  Transmission Date: 20190204
  Serious: Yes (Other)
  Sender: FDA-Public Use
  Company Number: FR-MERCK KGAA-2046262

PATIENT
  Age: 32 Year
  Sex: Female

DRUGS (1)
  1. EUTHYROX [Suspect]
     Active Substance: LEVOTHYROXINE SODIUM
     Indication: PRODUCT USED FOR UNKNOWN INDICATION

REACTIONS (36)
  - Muscle fatigue [Recovering/Resolving]
  - Major depression [Recovering/Resolving]
  - Agitation [Recovering/Resolving]
  - Hyperventilation [Recovering/Resolving]
  - Palpitations [Recovering/Resolving]
  - Abdominal distension [Recovering/Resolving]
  - Sciatica [Recovering/Resolving]
  - Loss of personal independence in daily activities [Recovering/Resolving]
  - Restless legs syndrome [Recovering/Resolving]
  - Muscle disorder [Recovering/Resolving]
  - Fatigue [Recovering/Resolving]
  - Social avoidant behaviour [Recovering/Resolving]
  - Constipation [Recovering/Resolving]
  - Irritability [Recovering/Resolving]
  - Dysphonia [Recovering/Resolving]
  - Asthenia [Recovering/Resolving]
  - Blood thyroid stimulating hormone decreased [Recovered/Resolved]
  - Headache [Recovering/Resolving]
  - Muscle spasms [Recovering/Resolving]
  - Insomnia [Recovering/Resolving]
  - Tension [Recovering/Resolving]
  - Joint swelling [Recovering/Resolving]
  - Generalised oedema [Recovering/Resolving]
  - Arthralgia [Recovering/Resolving]
  - Neck pain [Recovering/Resolving]
  - Weight increased [Recovering/Resolving]
  - Hyperhidrosis [Recovering/Resolving]
  - Affective disorder [Recovering/Resolving]
  - Emotional distress [Recovering/Resolving]
  - Blood thyroid stimulating hormone increased [Recovered/Resolved]
  - Stress [Recovering/Resolving]
  - Thyroxine free increased [Recovering/Resolving]
  - Fluid retention [Recovering/Resolving]
  - Myalgia [Recovering/Resolving]
  - Disturbance in attention [Recovering/Resolving]
  - Dyspnoea [Recovering/Resolving]

NARRATIVE: CASE EVENT DATE: 201703
